FAERS Safety Report 8556954-5 (Version None)
Quarter: 2012Q3

REPORT INFORMATION
  Report Type: 
  Country: None (occurrence: None)
  Receive Date: 20120801
  Receipt Date: 20120725
  Transmission Date: 20120928
  Serious: Yes (Hospitalization)
  Sender: FDA-Public Use
  Company Number: US-JNJFOC-20120715206

PATIENT
  Sex: Male

DRUGS (3)
  1. REMICADE [Suspect]
     Indication: CROHN'S DISEASE
     Route: 042
     Dates: start: 20120511, end: 20120511
  2. IMURAN [Concomitant]
  3. REMICADE [Suspect]
     Route: 042
     Dates: start: 19980101, end: 19980101

REACTIONS (5)
  - ARTHRALGIA [None]
  - MYALGIA [None]
  - PAIN IN JAW [None]
  - PYREXIA [None]
  - HOSPITALISATION [None]
